FAERS Safety Report 11273370 (Version 3)
Quarter: 2015Q3

REPORT INFORMATION
  Report Type: Spontaneous
  Country: US (occurrence: US)
  Receive Date: 20150715
  Receipt Date: 20150831
  Transmission Date: 20151125
  Serious: Yes (Death, Hospitalization, Other)
  Sender: FDA-Public Use
  Company Number: US-JNJFOC-20150710726

PATIENT
  Age: 60 Year
  Sex: Male

DRUGS (5)
  1. OXYCODONE [Concomitant]
     Active Substance: OXYCODONE
  2. NEURONTIN [Concomitant]
     Active Substance: GABAPENTIN
  3. DIAZEPAM. [Concomitant]
     Active Substance: DIAZEPAM
  4. IMBRUVICA [Suspect]
     Active Substance: IBRUTINIB
     Indication: CHRONIC LYMPHOCYTIC LEUKAEMIA
     Route: 048
     Dates: start: 20140716
  5. IMBRUVICA [Suspect]
     Active Substance: IBRUTINIB
     Indication: LYMPHOMA
     Route: 048
     Dates: start: 20140716

REACTIONS (10)
  - Pneumonia [Unknown]
  - Depressed level of consciousness [Unknown]
  - Respiratory failure [Unknown]
  - Hepatic enzyme increased [Unknown]
  - Multi-organ failure [Fatal]
  - Electrolyte imbalance [Unknown]
  - Pneumothorax [Unknown]
  - Supraventricular tachycardia [Unknown]
  - Septic shock [Unknown]
  - Acute kidney injury [Unknown]

NARRATIVE: CASE EVENT DATE: 201507
